FAERS Safety Report 8985522 (Version 1)
Quarter: 2012Q4

REPORT INFORMATION
  Report Type: 
  Country: US (occurrence: US)
  Receive Date: 20121226
  Receipt Date: 20121226
  Transmission Date: 20130627
  Serious: Yes (Other)
  Sender: FDA-Public Use
  Company Number: US-PFIZER INC-2012322291

PATIENT
  Age: 55 Year
  Sex: Female

DRUGS (2)
  1. SOMAVERT [Suspect]
     Indication: ACROMEGALY
     Dosage: 10 mg, daily
     Dates: start: 20120402
  2. SOMAVERT [Suspect]
     Indication: GIGANTISM

REACTIONS (1)
  - Musculoskeletal discomfort [Unknown]
